FAERS Safety Report 12089391 (Version 1)
Quarter: 2016Q1

REPORT INFORMATION
  Report Type: Spontaneous
  Country: CH (occurrence: CH)
  Receive Date: 20160218
  Receipt Date: 20160218
  Transmission Date: 20160526
  Serious: Yes (Hospitalization)
  Sender: FDA-Public Use
  Company Number: CH-PFIZER INC-2016094208

PATIENT
  Age: 76 Year
  Sex: Male

DRUGS (11)
  1. TOREM /01036501/ [Interacting]
     Active Substance: TORSEMIDE
     Indication: CORONARY ARTERY DISEASE
     Dosage: 20 MG, 1X/DAY
     Route: 048
  2. BRILIQUE [Concomitant]
     Active Substance: TICAGRELOR
     Dosage: UNK
  3. METFORMIN [Concomitant]
     Active Substance: METFORMIN HYDROCHLORIDE
     Dosage: UNK
  4. ASPIRIN CARDIO [Concomitant]
     Active Substance: ASPIRIN
     Dosage: UNK
  5. PANTOZOL [Suspect]
     Active Substance: PANTOPRAZOLE SODIUM
     Indication: CHRONIC GASTRITIS
     Dosage: 40 MG, 1X/DAY
     Route: 048
     Dates: start: 20151119, end: 20151220
  6. TRIATEC /00885601/ [Concomitant]
     Active Substance: RAMIPRIL
     Dosage: UNK
  7. TOREM /01036501/ [Interacting]
     Active Substance: TORSEMIDE
     Dosage: 10 MG, 1X/DAY
     Route: 048
     Dates: start: 20151107
  8. ALDACTONE [Concomitant]
     Active Substance: SPIRONOLACTONE
     Dosage: UNK
  9. NEBILET [Concomitant]
     Active Substance: NEBIVOLOL
     Dosage: UNK
  10. ATORVASTATIN [Concomitant]
     Active Substance: ATORVASTATIN
     Dosage: UNK
  11. JANUVIA [Concomitant]
     Active Substance: SITAGLIPTIN PHOSPHATE
     Dosage: UNK

REACTIONS (7)
  - Hypocalcaemia [Recovered/Resolved]
  - Muscular weakness [Unknown]
  - Hypoparathyroidism [Unknown]
  - Formication [Unknown]
  - Blood magnesium decreased [Recovered/Resolved]
  - Potentiating drug interaction [Recovered/Resolved]
  - Hypokalaemia [Recovered/Resolved]

NARRATIVE: CASE EVENT DATE: 201511
